FAERS Safety Report 6068283-2 (Version None)
Quarter: 2009Q1

REPORT INFORMATION
  Report Type: 
  Country: None (occurrence: None)
  Receive Date: 20090206
  Receipt Date: 20090202
  Transmission Date: 20090719
  Serious: Yes (Death, Other)
  Sender: FDA-Public Use
  Company Number: PHHY2009JP03895

PATIENT
  Age: 54 Year
  Sex: Male

DRUGS (3)
  1. CYCLOSPORINE [Suspect]
     Indication: RENAL TRANSPLANT
     Route: 048
  2. PREDNISOLONE [Suspect]
     Indication: RENAL TRANSPLANT
     Route: 048
  3. MYCOPHENOLATE MOFETIL [Suspect]
     Indication: RENAL TRANSPLANT
     Route: 048

REACTIONS (2)
  - AZOOSPERMIA [None]
  - ENDOCARDITIS BACTERIAL [None]
